FAERS Safety Report 9070792 (Version 1)
Quarter: 2013Q1

REPORT INFORMATION
  Report Type: Report from Study
  Country: US (occurrence: US)
  Receive Date: 20130129
  Receipt Date: 20130129
  Transmission Date: 20140127
  Serious: No
  Sender: FDA-Public Use
  Company Number: US-ABBOTT-12P-163-0932505-00

PATIENT
  Age: 53 None
  Sex: Female

DRUGS (1)
  1. HUMIRA 40 MG/ 0.8 ML PRE-FILLED SYRINGE [Suspect]
     Indication: PSORIASIS
     Route: 058
     Dates: start: 2009, end: 201203

REACTIONS (4)
  - Inflammation [Recovered/Resolved]
  - Lip swelling [Recovered/Resolved]
  - Furuncle [Recovered/Resolved]
  - Staphylococcal infection [Recovered/Resolved]
